FAERS Safety Report 9912890 (Version 4)
Quarter: 2014Q1

REPORT INFORMATION
  Report Type: Report from Study
  Country: JP (occurrence: JP)
  Receive Date: 20140220
  Receipt Date: 20140305
  Transmission Date: 20141002
  Serious: Yes (Hospitalization)
  Sender: FDA-Public Use
  Company Number: JP-ROCHE-1351765

PATIENT
  Age: 42 Year
  Sex: Female
  Weight: 52.4 kg

DRUGS (8)
  1. TRASTUZUMAB EMTANSINE [Suspect]
     Indication: BREAST CANCER METASTATIC
     Route: 042
     Dates: start: 20140212
  2. OXYCONTIN [Concomitant]
     Indication: CANCER PAIN
     Route: 048
     Dates: start: 20140130
  3. OXINORM (JAPAN) [Concomitant]
     Indication: CANCER PAIN
     Route: 048
     Dates: start: 20140116
  4. METRONIDAZOLE [Concomitant]
     Indication: TUMOUR NECROSIS
     Route: 003
     Dates: start: 20131204
  5. FENTOS TAPE [Concomitant]
     Indication: CANCER PAIN
     Route: 062
     Dates: start: 20140130
  6. REFLEX (JAPAN) [Concomitant]
     Indication: CANCER PAIN
     Route: 048
     Dates: start: 20140109
  7. LAXOBERON [Concomitant]
     Indication: CONSTIPATION PROPHYLAXIS
     Route: 048
     Dates: start: 20140109
  8. MAGNESIUM OXIDE [Concomitant]
     Indication: CONSTIPATION PROPHYLAXIS
     Dosage: PROPERLY
     Route: 048
     Dates: start: 20140109

REACTIONS (3)
  - Hypoxia [Recovered/Resolved]
  - Pneumonia [Recovering/Resolving]
  - Sepsis [Recovered/Resolved]
